FAERS Safety Report 9992321 (Version 2)
Quarter: 2014Q1

REPORT INFORMATION
  Report Type: Spontaneous
  Country: US (occurrence: US)
  Receive Date: 20140310
  Receipt Date: 20140310
  Transmission Date: 20141002
  Serious: Yes (Hospitalization)
  Sender: FDA-Public Use
  Company Number: US-GLAXOSMITHKLINE-A0739930A

PATIENT
  Age: 51 Year
  Sex: Female
  Weight: 86.8 kg

DRUGS (13)
  1. AVANDIA [Suspect]
     Indication: TYPE 2 DIABETES MELLITUS
     Dosage: 8MG PER DAY
     Route: 048
     Dates: start: 2001, end: 2007
  2. PREVACID [Concomitant]
     Dosage: 30MG PER DAY
  3. ATENOLOL [Concomitant]
     Dosage: 25MG PER DAY
  4. LIPITOR [Concomitant]
     Dosage: 10MG PER DAY
  5. ASPIRIN [Concomitant]
     Dosage: 81MG PER DAY
  6. GLUCOPHAGE [Concomitant]
     Dosage: 1000MG TWICE PER DAY
  7. AMARYL [Concomitant]
     Indication: PRODUCT USED FOR UNKNOWN INDICATION
     Dates: start: 2000
  8. METOPROLOL [Concomitant]
     Dates: start: 2000
  9. JANUVIA [Concomitant]
     Dates: start: 2006
  10. BYETTA [Concomitant]
     Dates: start: 2005, end: 2005
  11. PLAVIX [Concomitant]
  12. DICLOFENAC [Concomitant]
  13. ACIPHEX [Concomitant]

REACTIONS (8)
  - Acute myocardial infarction [Unknown]
  - Myocardial ischaemia [Unknown]
  - Cardiac stress test abnormal [Unknown]
  - Cardiac flutter [Unknown]
  - Coronary artery disease [Unknown]
  - Cardiac disorder [Unknown]
  - Myocardial infarction [Unknown]
  - Cor pulmonale chronic [Unknown]
